FAERS Safety Report 10333283 (Version 2)
Quarter: 2014Q3

REPORT INFORMATION
  Report Type: Spontaneous
  Country: US (occurrence: US)
  Receive Date: 20140722
  Receipt Date: 20140722
  Transmission Date: 20150326
  Serious: No
  Sender: FDA-Public Use
  Company Number: US-SA-A03200704155

PATIENT
  Age: 47 Year
  Sex: Female

DRUGS (1)
  1. ZOLPIDEM TARTRATE. [Suspect]
     Active Substance: ZOLPIDEM TARTRATE
     Indication: INSOMNIA
     Dosage: UNIT DOSE: 10 MG
     Route: 048
     Dates: start: 20070521, end: 20070521

REACTIONS (8)
  - Hangover [Recovered/Resolved]
  - Disorientation [Recovered/Resolved]
  - Headache [Recovered/Resolved]
  - Onychophagia [Recovered/Resolved]
  - Nausea [Recovered/Resolved]
  - Malaise [Recovered/Resolved]
  - Hypersensitivity [Recovered/Resolved]
  - Vomiting [Recovered/Resolved]

NARRATIVE: CASE EVENT DATE: 20070522
